FAERS Safety Report 9454730 (Version 1)
Quarter: 2013Q3

REPORT INFORMATION
  Report Type: Report from Study
  Country: US (occurrence: US)
  Receive Date: 20130812
  Receipt Date: 20130812
  Transmission Date: 20140515
  Serious: Yes (Other)
  Sender: FDA-Public Use
  Company Number: US-US-EMD SERONO, INC.-7228669

PATIENT
  Age: 47 Year
  Sex: Female

DRUGS (4)
  1. REBIF [Suspect]
     Indication: MULTIPLE SCLEROSIS
     Dates: start: 20090123, end: 20120919
  2. REBIF [Suspect]
     Route: 058
     Dates: start: 20130505
  3. KLONOPIN [Concomitant]
     Indication: CONVULSION
     Dates: start: 2004
  4. KLONOPIN [Concomitant]
     Indication: NERVOUSNESS

REACTIONS (8)
  - Kidney infection [Unknown]
  - Traumatic liver injury [Unknown]
  - Loss of consciousness [Recovered/Resolved]
  - Road traffic accident [Unknown]
  - Ligament sprain [Unknown]
  - Multiple sclerosis relapse [Not Recovered/Not Resolved]
  - Neck pain [Not Recovered/Not Resolved]
  - Depressed mood [Not Recovered/Not Resolved]
